FAERS Safety Report 16713994 (Version 2)
Quarter: 2019Q3

REPORT INFORMATION
  Report Type: Spontaneous
  Country: BR (occurrence: BR)
  Receive Date: 20190819
  Receipt Date: 20190911
  Transmission Date: 20191004
  Serious: Yes (Other)
  Sender: FDA-Public Use
  Company Number: BR-GLAXOSMITHKLINE-BR2019GSK077609

PATIENT
  Sex: Female
  Weight: 68 kg

DRUGS (1)
  1. BENLYSTA [Suspect]
     Active Substance: BELIMUMAB
     Indication: SYSTEMIC LUPUS ERYTHEMATOSUS
     Dosage: 620 MG, UNK
     Dates: start: 20180917

REACTIONS (11)
  - Wound [Unknown]
  - Oropharyngeal pain [Unknown]
  - Visual impairment [Unknown]
  - Blister [Unknown]
  - Product availability issue [Unknown]
  - Glaucoma [Unknown]
  - Weight increased [Unknown]
  - Oropharyngeal blistering [Unknown]
  - Lacrimation increased [Unknown]
  - Arthralgia [Unknown]
  - Inappropriate schedule of product administration [Unknown]
